FAERS Safety Report 7287883-5 (Version None)
Quarter: 2011Q1

REPORT INFORMATION
  Report Type: 
  Country: None (occurrence: None)
  Receive Date: 20110211
  Receipt Date: 20110113
  Transmission Date: 20110831
  Serious: No
  Sender: FDA-Public Use
  Company Number: A0894690A

PATIENT
  Age: 32 Year
  Sex: Female

DRUGS (3)
  1. TREXIMET [Suspect]
     Indication: MIGRAINE
     Dosage: 1TAB AS REQUIRED
     Route: 048
     Dates: start: 20101121
  2. ZOLOFT [Concomitant]
  3. TRILEPTAL [Concomitant]

REACTIONS (3)
  - OROPHARYNGEAL SPASM [None]
  - OROPHARYNGEAL PAIN [None]
  - ADVERSE DRUG REACTION [None]
